FAERS Safety Report 19989820 (Version 1)
Quarter: 2021Q4

REPORT INFORMATION
  Report Type: Spontaneous
  Country: US (occurrence: US)
  Receive Date: 20211021
  Receipt Date: 20211021
  Transmission Date: 20220303
  Serious: Yes (Hospitalization)
  Sender: FDA-Public Use
  Company Number: None

PATIENT
  Sex: Female

DRUGS (10)
  1. TACROLIMUS [Suspect]
     Active Substance: TACROLIMUS
     Indication: Systemic lupus erythematosus
     Dosage: ?          OTHER DOSE:3 CAPS - 2 CAPS;OTHER FREQUENCY:QAM - QPM;
     Route: 048
     Dates: start: 20201209
  2. MYCOPHENOLIC ACID [Concomitant]
     Active Substance: MYCOPHENOLIC ACID
  3. ALBUTEROL SULFATE [Concomitant]
     Active Substance: ALBUTEROL SULFATE
  4. FOLIC ACID [Concomitant]
     Active Substance: FOLIC ACID
  5. AZATHIOPRINE [Concomitant]
     Active Substance: AZATHIOPRINE
  6. LEVETIRACETAM [Concomitant]
     Active Substance: LEVETIRACETAM
  7. LEVOTHYROXINE [Concomitant]
     Active Substance: LEVOTHYROXINE
  8. UNSPECIFIED INGREDIENT [Concomitant]
     Active Substance: UNSPECIFIED INGREDIENT
  9. TEMAZEPAM [Concomitant]
     Active Substance: TEMAZEPAM
  10. VALACYCLOVIR [Concomitant]
     Active Substance: VALACYCLOVIR HYDROCHLORIDE

REACTIONS (3)
  - Fatigue [None]
  - Nausea [None]
  - Nervous system disorder [None]
